FAERS Safety Report 9903407 (Version 1)
Quarter: 2014Q1

REPORT INFORMATION
  Report Type: Spontaneous
  Country: US (occurrence: US)
  Receive Date: 20140217
  Receipt Date: 20140217
  Transmission Date: 20141002
  Serious: No
  Sender: FDA-Public Use
  Company Number: US-GILEAD-2011-0046864

PATIENT
  Age: 64 Year
  Sex: Female

DRUGS (4)
  1. LETAIRIS [Suspect]
     Indication: PRODUCT USED FOR UNKNOWN INDICATION
     Dosage: 10 MG, UNK
     Route: 048
     Dates: start: 20110225
  2. FLOLAN [Concomitant]
  3. ADCIRCA [Concomitant]
  4. ALPRAZOLAM [Concomitant]

REACTIONS (2)
  - Insomnia [Unknown]
  - Flushing [Unknown]
